FAERS Safety Report 10928325 (Version 1)
Quarter: 2015Q1

REPORT INFORMATION
  Report Type: Spontaneous
  Country: US (occurrence: US)
  Receive Date: 20150319
  Receipt Date: 20150319
  Transmission Date: 20150721
  Serious: No
  Sender: FDA-Public Use
  Company Number: US-009507513-1503USA004576

PATIENT

DRUGS (1)
  1. REMERON [Suspect]
     Active Substance: MIRTAZAPINE
     Dosage: 1 AND 1/2 TABLETS EACH DAY
     Route: 048

REACTIONS (2)
  - No adverse event [Unknown]
  - Prescribed overdose [Unknown]
